FAERS Safety Report 8710809 (Version 12)
Quarter: 2013Q3

REPORT INFORMATION
  Report Type: Report from Study
  Country: LB (occurrence: LB)
  Receive Date: 20120807
  Receipt Date: 20130816
  Transmission Date: 20140515
  Serious: Yes (Death, Hospitalization)
  Sender: FDA-Public Use
  Company Number: PHHY2012LB067278

PATIENT
  Age: 57 Year
  Sex: Male

DRUGS (10)
  1. TASIGNA [Suspect]
     Indication: CHRONIC MYELOID LEUKAEMIA
     Dosage: 800 MG PER DAY
     Route: 048
     Dates: start: 2008
  2. DIAMICRON [Suspect]
     Dosage: 1 DF, DAILY
     Route: 048
  3. ALDACTONE [Suspect]
     Dosage: 0.5 DF, DAILY
     Route: 048
     Dates: start: 201207
  4. LASIX [Suspect]
     Dosage: 1 DF, PER DAY
     Route: 048
  5. VASTAREL [Concomitant]
     Dosage: 1 DF, Q12H
     Route: 048
     Dates: start: 201207
  6. CORDARONE [Concomitant]
     Dosage: 1 DF, DAILY EXCEPT WEEKEND
     Route: 048
     Dates: start: 201207
  7. DIAMINE PENICILLIN [Concomitant]
  8. AERIUS [Concomitant]
     Dosage: 1 DF, DAILY
     Route: 048
  9. ZYLORIC [Concomitant]
     Dosage: 0.5 DF, DAILY
     Route: 048
     Dates: start: 201207
  10. ANTIHISTAMINES [Concomitant]

REACTIONS (18)
  - Cardiac arrest [Fatal]
  - Acute pulmonary oedema [Fatal]
  - Cataract [Not Recovered/Not Resolved]
  - Gingivitis [Recovering/Resolving]
  - Gingival bleeding [Recovering/Resolving]
  - Thyroid disorder [Not Recovered/Not Resolved]
  - Tachycardia [Recovered/Resolved]
  - Hypotension [Recovered/Resolved]
  - Hyperglycaemia [Not Recovered/Not Resolved]
  - Asthenia [Not Recovered/Not Resolved]
  - Decreased appetite [Not Recovered/Not Resolved]
  - Swelling [Recovering/Resolving]
  - Muscle spasms [Not Recovered/Not Resolved]
  - Vision blurred [Recovering/Resolving]
  - Influenza [Recovering/Resolving]
  - Cough [Recovered/Resolved]
  - Musculoskeletal pain [Recovering/Resolving]
  - Lymphopenia [Not Recovered/Not Resolved]
